FAERS Safety Report 25442413 (Version 1)
Quarter: 2025Q2

REPORT INFORMATION
  Report Type: Report from Study
  Country: KR (occurrence: KR)
  Receive Date: 20250617
  Receipt Date: 20250617
  Transmission Date: 20250716
  Serious: Yes (Other)
  Sender: Norvium Bioscience
  Company Number: KR-Norvium Bioscience LLC-080257

PATIENT
  Age: 44 Year
  Sex: Female

DRUGS (1)
  1. LINEZOLID [Suspect]
     Active Substance: LINEZOLID
     Indication: Pulmonary tuberculosis

REACTIONS (4)
  - Vision blurred [Recovered/Resolved]
  - Toxic optic neuropathy [Recovered/Resolved]
  - Visual field defect [Recovered/Resolved]
  - Retinal haemorrhage [Recovered/Resolved]
